FAERS Safety Report 23996969 (Version 1)
Quarter: 2024Q2

REPORT INFORMATION
  Report Type: Report from Study
  Country: US (occurrence: US)
  Receive Date: 20240621
  Receipt Date: 20240621
  Transmission Date: 20240716
  Serious: Yes (Other)
  Sender: FDA-Public Use
  Company Number: US-JNJFOC-20240646892

PATIENT
  Age: 39 Year
  Sex: Female

DRUGS (1)
  1. SPRAVATO [Suspect]
     Active Substance: ESKETAMINE
     Indication: Depression
     Dosage: 56 MG TOTAL 1 DOSE
     Dates: start: 20240416, end: 20240416

REACTIONS (3)
  - Migraine [Recovering/Resolving]
  - Insomnia [Unknown]
  - Agitation [Unknown]
